FAERS Safety Report 25278374 (Version 2)
Quarter: 2025Q3

REPORT INFORMATION
  Report Type: Report from Study
  Country: IN (occurrence: IN)
  Receive Date: 20250507
  Receipt Date: 20250715
  Transmission Date: 20251020
  Serious: Yes (Other)
  Sender: NOVARTIS
  Company Number: IN-002147023-NVSC2024IN022100

PATIENT
  Sex: Female

DRUGS (2)
  1. RIBOCICLIB [Suspect]
     Active Substance: RIBOCICLIB
     Indication: Hormone receptor positive HER2 negative breast cancer
     Dosage: 200 MG, BID
     Route: 048
     Dates: start: 20220711
  2. RIBOCICLIB [Suspect]
     Active Substance: RIBOCICLIB
     Indication: Breast cancer metastatic
     Dosage: 400 MG, QD
     Route: 048

REACTIONS (29)
  - Breast cancer metastatic [Unknown]
  - Malignant neoplasm progression [Unknown]
  - White blood cell count decreased [Unknown]
  - Asthenia [Unknown]
  - Illness [Unknown]
  - Somnolence [Unknown]
  - Anxiety [Unknown]
  - Eye disorder [Unknown]
  - Alanine aminotransferase increased [Unknown]
  - Blood calcium decreased [Unknown]
  - Blood chloride decreased [Unknown]
  - Blood glucose increased [Unknown]
  - Blood urea nitrogen/creatinine ratio increased [Unknown]
  - Aspartate aminotransferase increased [Unknown]
  - Blood urea increased [Unknown]
  - Blood uric acid increased [Unknown]
  - Globulins decreased [Unknown]
  - Haematocrit decreased [Unknown]
  - Haemoglobin decreased [Unknown]
  - Red cell distribution width increased [Unknown]
  - Lymphocyte percentage increased [Unknown]
  - Mean cell volume increased [Unknown]
  - Mean cell haemoglobin concentration decreased [Unknown]
  - Platelet distribution width increased [Unknown]
  - Platelet-large cell ratio increased [Unknown]
  - Red blood cell count decreased [Unknown]
  - Blood calcium increased [Unknown]
  - Blood sodium increased [Unknown]
  - Off label use [Unknown]
